FAERS Safety Report 7300761-8 (Version None)
Quarter: 2011Q1

REPORT INFORMATION
  Report Type: 
  Country: None (occurrence: None)
  Receive Date: 20110103
  Receipt Date: 20080828
  Transmission Date: 20110831
  Serious: Yes (Hospitalization)
  Sender: FDA-Public Use
  Company Number: US-001807

PATIENT
  Age: 60 Year
  Sex: Male
  Weight: 91.3 kg

DRUGS (4)
  1. ATACAND [Concomitant]
  2. MULTIHANCE [Suspect]
     Indication: NUCLEAR MAGNETIC RESONANCE IMAGING BRAIN ABNORMAL
     Dosage: 20ML QD INTRAVENOUS
     Route: 042
     Dates: start: 20080827, end: 20080827
  3. MULTIHANCE [Suspect]
     Indication: NUCLEAR MAGNETIC RESONANCE IMAGING BRAIN
     Dosage: 20ML QD INTRAVENOUS
     Route: 042
     Dates: start: 20080827, end: 20080827
  4. POTASSIUM CHLORIDE [Concomitant]

REACTIONS (1)
  - ANAPHYLACTIC REACTION [None]
